FAERS Safety Report 7756422-4 (Version None)
Quarter: 2011Q3

REPORT INFORMATION
  Report Type: 
  Country: None (occurrence: None)
  Receive Date: 20110901
  Receipt Date: 20110818
  Transmission Date: 20111222
  Serious: Yes (Hospitalization)
  Sender: FDA-Public Use
  Company Number: 2011PROUSA00451

PATIENT
  Age: 79 Year
  Sex: Male
  Weight: 123.4 kg

DRUGS (19)
  1. SIMVASTATIN [Concomitant]
  2. ANTIFUNGAL WITH MICONAZOLE NITRATE (MICONAZOLE NITRATE) [Concomitant]
  3. PROVENGE [Suspect]
     Indication: PROSTATE CANCER METASTATIC
     Dosage: 250 ML, SINGLE, INTRAVENOUS
     Route: 042
  4. VITAMIN B12 [Concomitant]
  5. TERAZOSIN HCL [Concomitant]
  6. DIGOXIN [Concomitant]
  7. TRAVATAN [Concomitant]
  8. PROVENGE [Suspect]
     Dosage: 250 ML, SINGLE, INTRAVENOUS
     Route: 042
     Dates: start: 20110513, end: 20110513
  9. WARFARIN SODIUM [Concomitant]
  10. ALDACTAZIDE [Concomitant]
  11. PRILOSEC [Concomitant]
  12. PROVENGE [Suspect]
     Dosage: 250 ML, SINGLE, INTRAVENOUS
     Route: 042
     Dates: start: 20110429, end: 20110429
  13. VESICARE [Concomitant]
  14. ALPHAGAN [Concomitant]
  15. ALDACTONE [Concomitant]
  16. METOPROLOL TARTRATE [Concomitant]
  17. CASODEX [Concomitant]
  18. TRUSOPT [Concomitant]
  19. DILTIAZEM [Concomitant]

REACTIONS (28)
  - DEHYDRATION [None]
  - HYPOALBUMINAEMIA [None]
  - PSEUDOMONAS INFECTION [None]
  - DECREASED APPETITE [None]
  - FATIGUE [None]
  - HYPONATRAEMIA [None]
  - ATELECTASIS [None]
  - INFUSION RELATED REACTION [None]
  - MALNUTRITION [None]
  - PROSTATE CANCER [None]
  - CHILLS [None]
  - DISORIENTATION [None]
  - WEIGHT DECREASED [None]
  - NEOPLASM PROGRESSION [None]
  - TRACHEOBRONCHITIS [None]
  - ESCHERICHIA INFECTION [None]
  - ANAEMIA [None]
  - ILEUS [None]
  - RESPIRATORY FAILURE [None]
  - CONFUSIONAL STATE [None]
  - HYPOVOLAEMIA [None]
  - ASTHENIA [None]
  - INTESTINAL OBSTRUCTION [None]
  - SMALL INTESTINAL OBSTRUCTION [None]
  - RENAL FAILURE ACUTE [None]
  - HYPOPHAGIA [None]
  - HEART RATE INCREASED [None]
  - AFFECTIVE DISORDER [None]
